FAERS Safety Report 14329782 (Version 1)
Quarter: 2017Q4

REPORT INFORMATION
  Report Type: Spontaneous
  Country: US (occurrence: US)
  Receive Date: 20171227
  Receipt Date: 20171227
  Transmission Date: 20180321
  Serious: No
  Sender: FDA-Public Use
  Company Number: US-AVEDRO-AVE-2017-0293-AE

PATIENT

DRUGS (2)
  1. KXL SYSTEM [Suspect]
     Active Substance: DEVICE
     Indication: PRODUCT USED FOR UNKNOWN INDICATION
     Route: 047
     Dates: start: 20171013, end: 20171013
  2. PROPARACAINE [Concomitant]
     Active Substance: PROPARACAINE
     Indication: PRODUCT USED FOR UNKNOWN INDICATION
     Dates: start: 20171013, end: 20171013

REACTIONS (2)
  - Therapy cessation [Unknown]
  - No adverse event [Unknown]

NARRATIVE: CASE EVENT DATE: 20171013
